FAERS Safety Report 6846319-6 (Version None)
Quarter: 2010Q3

REPORT INFORMATION
  Report Type: 
  Country: None (occurrence: None)
  Receive Date: 20100715
  Receipt Date: 20070917
  Transmission Date: 20110219
  Serious: No
  Sender: FDA-Public Use
  Company Number: US-PFIZER INC-2007078154

PATIENT
  Age: 68 Year
  Sex: Female
  Weight: 50.8 kg

DRUGS (8)
  1. CHANTIX [Suspect]
     Dates: start: 20070801, end: 20070901
  2. ZOCOR [Concomitant]
     Indication: BLOOD CHOLESTEROL
  3. LOPRESSOR [Concomitant]
     Indication: CARDIAC DISORDER
  4. ACETYLSALICYLIC ACID [Concomitant]
  5. OMEGA-3 TRIGLYCERIDES [Concomitant]
  6. COENZYME Q10 [Concomitant]
  7. VITAMIN B-12 [Concomitant]
  8. MULTI-VITAMINS [Concomitant]

REACTIONS (2)
  - NAUSEA [None]
  - VOMITING [None]
